FAERS Safety Report 4796767-3 (Version None)
Quarter: 2005Q4

REPORT INFORMATION
  Report Type: 
  Country: None (occurrence: None)
  Receive Date: 20051007
  Receipt Date: 20050928
  Transmission Date: 20060501
  Serious: Yes (Other)
  Sender: FDA-Public Use
  Company Number: L05-ITA-03570-02

PATIENT
  Age: 24 Month
  Sex: Male

DRUGS (3)
  1. CARBAMAZEPINE [Suspect]
     Indication: EPILEPSY
     Dosage: UNK
     Route: 065
  2. PHENOBARBITONE [Concomitant]
  3. VALPROIC ACID [Concomitant]

REACTIONS (1)
  - MYOCLONIC EPILEPSY [None]
